FAERS Safety Report 11230733 (Version 1)
Quarter: 2015Q2

REPORT INFORMATION
  Report Type: Spontaneous
  Country: US (occurrence: None)
  Receive Date: 20150629
  Receipt Date: 20150629
  Transmission Date: 20150821
  Serious: No
  Sender: FDA-Public Use
  Company Number: None

PATIENT
  Age: 67 Year
  Sex: Male
  Weight: 58.06 kg

DRUGS (14)
  1. DULOXETINE HCL DR 30MG APOTEX [Suspect]
     Active Substance: DULOXETINE HYDROCHLORIDE
     Indication: NEUROPATHY PERIPHERAL
     Route: 048
     Dates: start: 20150618, end: 20150623
  2. PRAVASTATIN [Concomitant]
     Active Substance: PRAVASTATIN\PRAVASTATIN SODIUM
  3. CLONAZEPAM. [Concomitant]
     Active Substance: CLONAZEPAM
  4. LAMATROGINE [Concomitant]
  5. IRON [Concomitant]
     Active Substance: IRON
  6. ASPIRIN. [Concomitant]
     Active Substance: ASPIRIN
  7. MIDODRINE [Concomitant]
     Active Substance: MIDODRINE
  8. KALETRA [Concomitant]
     Active Substance: LOPINAVIR\RITONAVIR
  9. ACYCLOVIR. [Concomitant]
     Active Substance: ACYCLOVIR
  10. NEVIRAPINE. [Concomitant]
     Active Substance: NEVIRAPINE
  11. MAGNESIUM [Concomitant]
     Active Substance: MAGNESIUM
  12. LAMIVUDINE. [Concomitant]
     Active Substance: LAMIVUDINE
  13. VITAMIN B COMPLEX [Concomitant]
     Active Substance: CYANOCOBALAMIN\DEXPANTHENOL\NIACINAMIDE\PYRIDOXINE HYDROCHLORIDE\RIBOFLAVIN 5^-PHOSPHATE SODIUM\THIAMINE HYDROCHLORIDE\VITAMIN B COMPLEX
  14. BUSPIRONE [Concomitant]
     Active Substance: BUSPIRONE HYDROCHLORIDE

REACTIONS (8)
  - Product substitution issue [None]
  - Anger [None]
  - Hostility [None]
  - Depressed mood [None]
  - Insomnia [None]
  - Agitation [None]
  - Anxiety [None]
  - Emotional distress [None]

NARRATIVE: CASE EVENT DATE: 20150623
